FAERS Safety Report 13868321 (Version 5)
Quarter: 2017Q4

REPORT INFORMATION
  Report Type: Report from Study
  Country: US (occurrence: US)
  Receive Date: 20170815
  Receipt Date: 20171106
  Transmission Date: 20180320
  Serious: Yes (Hospitalization)
  Sender: FDA-Public Use
  Company Number: US-ROCHE-1967683

PATIENT
  Age: 56 Year
  Sex: Male
  Weight: 55.7 kg

DRUGS (49)
  1. DIPHENHYDRAMINE. [Concomitant]
     Active Substance: DIPHENHYDRAMINE
     Route: 042
     Dates: start: 20161018
  2. ZOFRAN [Concomitant]
     Active Substance: ONDANSETRON HYDROCHLORIDE
     Indication: NAUSEA
     Route: 048
     Dates: start: 20161018
  3. SALINE [Concomitant]
     Active Substance: SODIUM CHLORIDE
     Indication: HYDRONEPHROSIS
     Route: 042
     Dates: start: 20170703, end: 20170705
  4. CEFEPIME [Concomitant]
     Active Substance: CEFEPIME HYDROCHLORIDE
     Indication: LUNG INFECTION
     Route: 042
     Dates: end: 2017
  5. POLYETHYLENE GLYCOL [Concomitant]
     Active Substance: POLYETHYLENE GLYCOLS
     Indication: CONSTIPATION
     Route: 048
     Dates: start: 20170824, end: 20170825
  6. MELATONIN [Concomitant]
     Active Substance: MELATONIN
     Indication: ANXIETY
     Route: 048
     Dates: start: 20170822, end: 20170831
  7. BEVACIZUMAB. [Suspect]
     Active Substance: BEVACIZUMAB
     Indication: NEOPLASM
     Dosage: DATE OF MOST RECENT DOSE: 20/JUN/2017, LAST DOSE: 10 MG/KG
     Route: 042
     Dates: start: 20161018
  8. DULCOLAX (BISACODYL) [Concomitant]
     Active Substance: BISACODYL
     Indication: CONSTIPATION
     Route: 048
     Dates: start: 201608
  9. MEPERIDINE [Concomitant]
     Active Substance: MEPERIDINE
     Route: 042
     Dates: start: 20161018
  10. LIDOCAINE. [Concomitant]
     Active Substance: LIDOCAINE
     Indication: CATHETER SITE RELATED REACTION
     Route: 062
     Dates: start: 20161018
  11. OXYCODONE [Concomitant]
     Active Substance: OXYCODONE
     Route: 048
     Dates: start: 20170821, end: 20170823
  12. OXYCODONE [Concomitant]
     Active Substance: OXYCODONE
     Route: 048
     Dates: start: 20161115
  13. HYDRALAZINE [Concomitant]
     Active Substance: HYDRALAZINE HYDROCHLORIDE
     Indication: HYPERTENSION
     Route: 065
     Dates: start: 20170703, end: 2017
  14. SALINE [Concomitant]
     Active Substance: SODIUM CHLORIDE
     Indication: SMALL INTESTINAL OBSTRUCTION
     Route: 042
     Dates: start: 20170805, end: 20170805
  15. SUCRALFATE. [Concomitant]
     Active Substance: SUCRALFATE
     Indication: GASTROOESOPHAGEAL REFLUX DISEASE
     Route: 048
  16. CHLORHEXIDINE GLUCONATE. [Concomitant]
     Active Substance: CHLORHEXIDINE GLUCONATE
     Route: 048
     Dates: start: 20170826, end: 20170830
  17. SENNA/DOCUSATE SODIUM [Concomitant]
     Active Substance: DOCUSATE SODIUM\SENNOSIDES
     Indication: CONSTIPATION
     Route: 048
     Dates: start: 20170817, end: 20170831
  18. PALONOSETRON. [Concomitant]
     Active Substance: PALONOSETRON HYDROCHLORIDE
     Route: 042
     Dates: start: 20161018
  19. FAMOTIDINE. [Concomitant]
     Active Substance: FAMOTIDINE
     Route: 042
     Dates: start: 20161018
  20. OMEPRAZOLE. [Concomitant]
     Active Substance: OMEPRAZOLE
     Indication: GASTROOESOPHAGEAL REFLUX DISEASE
     Route: 048
     Dates: start: 20170523
  21. OXYCODONE [Concomitant]
     Active Substance: OXYCODONE
     Indication: SMALL INTESTINAL OBSTRUCTION
     Route: 048
     Dates: start: 20170823, end: 20170827
  22. OXYMORPHONE [Concomitant]
     Active Substance: OXYMORPHONE
     Indication: ABDOMINAL PAIN
     Route: 048
     Dates: start: 20170707
  23. OLANZAPINE ZYDUS [Concomitant]
     Indication: ANXIETY
     Route: 048
     Dates: start: 20170831, end: 20170831
  24. PROPOFOL. [Concomitant]
     Active Substance: PROPOFOL
     Indication: ENDOTRACHEAL INTUBATION
     Route: 042
     Dates: start: 20170826, end: 20170826
  25. OXALIPLATIN. [Suspect]
     Active Substance: OXALIPLATIN
     Indication: NEOPLASM
     Dosage: DATE OF MOST RECENT DOSE: 07/FEB/2017. LAST DOSE RECEIVED: 85 MG/M2
     Route: 042
     Dates: start: 20161018
  26. CLONAZEPAM. [Concomitant]
     Active Substance: CLONAZEPAM
     Indication: ANXIETY
     Route: 048
     Dates: end: 2017
  27. VANCOMYCIN [Concomitant]
     Active Substance: VANCOMYCIN
     Indication: LUNG INFECTION
     Route: 042
     Dates: end: 2017
  28. LEVAQUIN [Concomitant]
     Active Substance: LEVOFLOXACIN
     Indication: LUNG INFECTION
     Route: 042
     Dates: end: 2017
  29. EPINEPHRINE. [Concomitant]
     Active Substance: EPINEPHRINE
     Route: 042
     Dates: start: 20161018
  30. LIDOCAINE. [Concomitant]
     Active Substance: LIDOCAINE
     Route: 042
     Dates: start: 20170821, end: 20170821
  31. OXYCODONE [Concomitant]
     Active Substance: OXYCODONE
     Indication: ABDOMINAL PAIN
     Route: 048
     Dates: start: 20170225
  32. UNASYN (AMPICILLIN SODIUM) [Concomitant]
     Route: 042
     Dates: start: 20170826, end: 20170826
  33. ALPRAZOLAM. [Concomitant]
     Active Substance: ALPRAZOLAM
     Indication: ANXIETY
     Route: 048
     Dates: start: 2015
  34. DEXAMETHASONE. [Concomitant]
     Active Substance: DEXAMETHASONE
     Route: 048
     Dates: start: 20161018
  35. ALBUTEROL. [Concomitant]
     Active Substance: ALBUTEROL
     Dosage: 2.5 INHALATION
     Route: 050
     Dates: start: 20161018
  36. COMPAZINE [Concomitant]
     Active Substance: PROCHLORPERAZINE MALEATE
     Indication: NAUSEA
     Route: 048
     Dates: start: 20161018
  37. OXYCODONE [Concomitant]
     Active Substance: OXYCODONE
     Indication: ABDOMINAL PAIN LOWER
     Route: 048
     Dates: start: 20170823, end: 20170827
  38. OXYCODONE [Concomitant]
     Active Substance: OXYCODONE
     Route: 048
     Dates: start: 20170822, end: 20170823
  39. VANCOMYCIN [Concomitant]
     Active Substance: VANCOMYCIN
     Route: 042
     Dates: start: 20170823, end: 20170824
  40. ATEZOLIZUMAB. [Suspect]
     Active Substance: ATEZOLIZUMAB
     Indication: NEOPLASM
     Dosage: DATE OF MOST RECENT DOSE: 20/JUN/2017
     Route: 042
     Dates: start: 20161018
  41. FOLINIC ACID [Suspect]
     Active Substance: LEUCOVORIN
     Indication: NEOPLASM
     Dosage: DATE OF MOST RECENT DOSE: 20/JUN/2017, LAST DOSE RECEIVED: 400 MG/M2
     Route: 042
     Dates: start: 20161018
  42. LOPERAMIDE [Concomitant]
     Active Substance: LOPERAMIDE
     Indication: DIARRHOEA
     Route: 048
     Dates: start: 20161018
  43. CLEAR EYES (UNITED STATES) [Concomitant]
     Indication: VISION BLURRED
     Route: 047
     Dates: start: 20170509
  44. OXYCODONE [Concomitant]
     Active Substance: OXYCODONE
     Route: 048
     Dates: start: 20170822, end: 20170823
  45. HYDRALAZINE [Concomitant]
     Active Substance: HYDRALAZINE HYDROCHLORIDE
     Route: 042
     Dates: start: 20170818, end: 20170831
  46. UNASYN (AMPICILLIN SODIUM) [Concomitant]
     Indication: LUNG INFECTION
     Route: 042
     Dates: end: 2017
  47. 5-FU [Suspect]
     Active Substance: FLUOROURACIL
     Indication: NEOPLASM
     Dosage: DATE OF MOST RECENT DOSE: 20/JUN/2017, LAST DOSE RECEIVED: 2400 MG/M2.
     Route: 042
     Dates: start: 20161018
  48. GABAPENTIN. [Concomitant]
     Active Substance: GABAPENTIN
     Indication: PERIPHERAL SENSORY NEUROPATHY
     Route: 048
     Dates: start: 20170707
  49. AMLODIPINE [Concomitant]
     Active Substance: AMLODIPINE BESYLATE
     Indication: HYPERTENSION
     Route: 048
     Dates: start: 20170821, end: 20170826

REACTIONS (1)
  - Small intestinal obstruction [Not Recovered/Not Resolved]

NARRATIVE: CASE EVENT DATE: 20170718
